FAERS Safety Report 9190081 (Version 1)
Quarter: 2013Q1

REPORT INFORMATION
  Report Type: Spontaneous
  Country: GB (occurrence: None)
  Receive Date: 20130322
  Receipt Date: 20130322
  Transmission Date: 20140127
  Serious: Yes (Other)
  Sender: FDA-Public Use
  Company Number: AUR-APL-2013-02257

PATIENT
  Sex: Female

DRUGS (1)
  1. AMLODIPINE (AMLODIPINE) [Suspect]
     Indication: HYPERTENSION
     Dates: start: 2010

REACTIONS (2)
  - Headache [None]
  - Flushing [None]
